FAERS Safety Report 5208994-1 (Version None)
Quarter: 2007Q1

REPORT INFORMATION
  Report Type: 
  Country: None (occurrence: None)
  Receive Date: 20070116
  Receipt Date: 20070108
  Transmission Date: 20070707
  Serious: Yes (Life-Threatening, Hospitalization)
  Sender: FDA-Public Use
  Company Number: FR-GLAXOSMITHKLINE-B0454021A

PATIENT
  Age: 82 Year
  Sex: Male

DRUGS (9)
  1. ARIXTRA [Suspect]
     Indication: DRUG USE FOR UNKNOWN INDICATION
     Dosage: 7.5MG PER DAY
     Route: 058
     Dates: start: 20061108
  2. ASPIRIN [Concomitant]
     Dosage: 75MG PER DAY
     Route: 048
  3. TAHOR [Concomitant]
     Route: 048
     Dates: start: 20061108
  4. NEXIUM [Concomitant]
     Route: 048
  5. PLAVIX [Concomitant]
     Dosage: 75MG PER DAY
     Route: 048
     Dates: start: 20061108
  6. HYDREA [Concomitant]
     Route: 048
  7. DETENSIEL [Concomitant]
     Dosage: .5UNIT PER DAY
     Route: 048
  8. LASIX [Concomitant]
     Dosage: 40MG PER DAY
     Route: 048
  9. SPECIAFOLDINE [Concomitant]
     Route: 048
     Dates: start: 20061001

REACTIONS (5)
  - ACTIVATED PARTIAL THROMBOPLASTIN TIME PROLONGED [None]
  - ANAEMIA [None]
  - MUSCLE HAEMORRHAGE [None]
  - PROTHROMBIN LEVEL DECREASED [None]
  - SUBCUTANEOUS HAEMATOMA [None]
